FAERS Safety Report 9922197 (Version 1)
Quarter: 2014Q1

REPORT INFORMATION
  Report Type: Spontaneous
  Country: GB (occurrence: GB)
  Receive Date: 20140225
  Receipt Date: 20140225
  Transmission Date: 20141002
  Serious: Yes (Life-Threatening)
  Sender: FDA-Public Use
  Company Number: GB-WATSON-2014-02947

PATIENT
  Sex: Female

DRUGS (3)
  1. CLARITHROMYCIN (UNKNOWN) [Suspect]
     Indication: SKIN INFECTION
     Dosage: 500 MG, BID
     Route: 048
     Dates: start: 201401, end: 201401
  2. LEVEMIR [Interacting]
     Indication: TYPE 1 DIABETES MELLITUS
     Dosage: UNK
     Route: 065
  3. NOVORAPID [Interacting]
     Indication: TYPE 1 DIABETES MELLITUS
     Dosage: UNK
     Route: 065

REACTIONS (2)
  - Hypoglycaemia [Recovering/Resolving]
  - Drug interaction [Unknown]
